FAERS Safety Report 15772451 (Version 1)
Quarter: 2018Q4

REPORT INFORMATION
  Report Type: Spontaneous
  Country: DE (occurrence: DE)
  Receive Date: 20181228
  Receipt Date: 20181228
  Transmission Date: 20190205
  Serious: Yes (Hospitalization, Other)
  Sender: FDA-Public Use
  Company Number: DE-FERRINGPH-2018FE07341

PATIENT

DRUGS (4)
  1. BREVACTID [Suspect]
     Active Substance: GONADOTROPHIN, CHORIONIC
     Indication: ASSISTED REPRODUCTIVE TECHNOLOGY
     Dosage: 5000 IU, DAY 11 OF THE CYCLE
     Route: 065
  2. OVALEAP [Suspect]
     Active Substance: FOLLITROPIN
     Indication: ASSISTED REPRODUCTIVE TECHNOLOGY
     Dosage: 150 IU, DAY 4-10 OF THE CYCLE
     Route: 065
  3. OVALEAP [Suspect]
     Active Substance: FOLLITROPIN
     Dosage: 225 IU, DAY 2-3 OF THE CYCLE
     Route: 065
  4. ORGALUTRAN [Suspect]
     Active Substance: GANIRELIX ACETATE
     Indication: ASSISTED REPRODUCTIVE TECHNOLOGY
     Dosage: UNKNOWN, DAY 7-10 OF THE CYCLE
     Route: 065

REACTIONS (4)
  - Ovarian enlargement [Recovered/Resolved]
  - Cardiovascular disorder [Recovered/Resolved]
  - Abdominal discomfort [Recovered/Resolved]
  - Ovarian hyperstimulation syndrome [Recovered/Resolved]

NARRATIVE: CASE EVENT DATE: 20181204
